FAERS Safety Report 13041634 (Version 1)
Quarter: 2016Q4

REPORT INFORMATION
  Report Type: Spontaneous
  Country: US (occurrence: US)
  Receive Date: 20161219
  Receipt Date: 20161219
  Transmission Date: 20170207
  Serious: No
  Sender: FDA-Public Use
  Company Number: US-ROCHE-1269177

PATIENT
  Sex: Female

DRUGS (25)
  1. MAITAKE D-FRACTION [Concomitant]
     Dosage: 6 DROPS QID
     Route: 065
     Dates: start: 20120814
  2. METFORMIN [Concomitant]
     Active Substance: METFORMIN HYDROCHLORIDE
     Route: 048
     Dates: start: 20120322
  3. CEFDINIR. [Concomitant]
     Active Substance: CEFDINIR
     Route: 048
     Dates: start: 20130109
  4. CLARITIN-D 12 HOUR [Concomitant]
     Active Substance: LORATADINE\PSEUDOEPHEDRINE SULFATE
     Dosage: 5MG-120MG, EXTENDED RELEASE
     Route: 048
     Dates: start: 20130109
  5. HORMONE CREAM (UNK INGREDIENTS) [Concomitant]
     Route: 065
     Dates: start: 20120814
  6. WARFARIN [Concomitant]
     Active Substance: WARFARIN
     Route: 048
     Dates: start: 20130822
  7. BENADRYL [Concomitant]
     Active Substance: DIPHENHYDRAMINE HYDROCHLORIDE
     Dosage: AT BED TIME
     Route: 065
     Dates: start: 20120403
  8. FISH OIL [Concomitant]
     Active Substance: FISH OIL
     Dosage: 144 MG-216 MG
     Route: 048
     Dates: start: 20120322
  9. WARFARIN [Concomitant]
     Active Substance: WARFARIN
     Dosage: EVERY DAY
     Route: 048
     Dates: start: 20130708
  10. ARMOUR THYROID [Concomitant]
     Active Substance: THYROID, PORCINE
  11. NEURONTIN [Concomitant]
     Active Substance: GABAPENTIN
  12. ALPHA LIPOIC ACID [Concomitant]
     Active Substance: .ALPHA.-LIPOIC ACID
     Route: 048
     Dates: start: 20120322
  13. GABAPENTIN. [Concomitant]
     Active Substance: GABAPENTIN
     Dosage: 300 MG-600 MG, EXTENDED RELEASE 24 HR.
     Route: 048
     Dates: start: 20120814
  14. METOPROLOL TARTRATE. [Concomitant]
     Active Substance: METOPROLOL TARTRATE
     Dosage: 180 EA
     Route: 048
     Dates: start: 20130708
  15. SPIRONOLACTONE. [Concomitant]
     Active Substance: SPIRONOLACTONE
     Dosage: EVERY DAY AT BEDTIME.
     Route: 048
     Dates: start: 20120322
  16. VITAMIN A [Concomitant]
     Active Substance: VITAMIN A
     Dosage: 10,000 UNIT
     Route: 065
     Dates: start: 20130213
  17. ZELBORAF [Suspect]
     Active Substance: VEMURAFENIB
     Indication: METASTATIC MALIGNANT MELANOMA
     Dosage: 1 TAB EVERY OTHER DAY AND 2 TABS THE OTHER DAYS
     Route: 048
     Dates: start: 201203
  18. ZELBORAF [Suspect]
     Active Substance: VEMURAFENIB
     Route: 048
  19. CURCUMIN [Concomitant]
     Active Substance: CURCUMIN
     Dosage: 2 QAM
     Route: 065
     Dates: start: 20120814
  20. FOLIC ACID. [Concomitant]
     Active Substance: FOLIC ACID
     Route: 065
     Dates: start: 20130109
  21. COUMADIN [Concomitant]
     Active Substance: WARFARIN SODIUM
  22. CYANOCOBALAMIN. [Concomitant]
     Active Substance: CYANOCOBALAMIN
     Dosage: 1000 MCG/ML
     Route: 065
     Dates: start: 20120327
  23. METOPROLOL TARTRATE. [Concomitant]
     Active Substance: METOPROLOL TARTRATE
     Dosage: AM AND PM
     Route: 048
     Dates: start: 20120327
  24. FLAXSEED [Concomitant]
     Active Substance: FLAX SEED
     Dosage: 1 TABLE SPOON EVERY DAY
     Route: 065
     Dates: start: 20110106
  25. ZELBORAF [Concomitant]
     Active Substance: VEMURAFENIB
     Dosage: 1 TAB IN AM AND 1 TAB IN PM (2 ND TAB EVERY OTHER DAY).
     Route: 065
     Dates: start: 20120322

REACTIONS (6)
  - Pain in extremity [Not Recovered/Not Resolved]
  - Dysphagia [Not Recovered/Not Resolved]
  - Gingival recession [Not Recovered/Not Resolved]
  - Arthralgia [Recovered/Resolved]
  - Gingival pain [Not Recovered/Not Resolved]
  - Gingival disorder [Not Recovered/Not Resolved]
